FAERS Safety Report 11926921 (Version 2)
Quarter: 2016Q1

REPORT INFORMATION
  Report Type: Spontaneous
  Country: US (occurrence: US)
  Receive Date: 20160119
  Receipt Date: 20160128
  Transmission Date: 20160526
  Serious: No
  Sender: FDA-Public Use
  Company Number: US-GLAXOSMITHKLINE-US2016005292

PATIENT
  Sex: Female

DRUGS (5)
  1. BENLYSTA [Suspect]
     Active Substance: BELIMUMAB
     Indication: PRODUCT USED FOR UNKNOWN INDICATION
     Dosage: UNK
     Route: 042
     Dates: start: 2014, end: 20150113
  2. CYCLOBENZAPRINE [Concomitant]
     Active Substance: CYCLOBENZAPRINE
  3. FISH OIL [Concomitant]
     Active Substance: FISH OIL
  4. KEPPRA [Concomitant]
     Active Substance: LEVETIRACETAM
  5. ASPIRIN. [Concomitant]
     Active Substance: ASPIRIN

REACTIONS (5)
  - Drug ineffective [Unknown]
  - Infection [Unknown]
  - Fatigue [Unknown]
  - Double stranded DNA antibody positive [Unknown]
  - White blood cell count decreased [Unknown]
